FAERS Safety Report 6544795-X (Version None)
Quarter: 2010Q1

REPORT INFORMATION
  Report Type: 
  Country: None (occurrence: None)
  Receive Date: 20100120
  Receipt Date: 20100120
  Transmission Date: 20100710
  Serious: No
  Sender: FDA-Public Use
  Company Number: None

PATIENT
  Age: 9 Year
  Sex: Female
  Weight: 28.7581 kg

DRUGS (2)
  1. ASACOL [Suspect]
     Indication: COLITIS ULCERATIVE
     Dosage: 400MG TABLETS 3-4 TIMES DAILY PO
     Route: 048
     Dates: start: 20090824, end: 20091109
  2. ROWASA [Suspect]
     Indication: COLITIS ULCERATIVE
     Dosage: 4 GRAMS/60ML ONCE DAILY AT BEDT RECTAL
     Route: 054
     Dates: start: 20091102, end: 20091108

REACTIONS (3)
  - DIARRHOEA [None]
  - DRUG INEFFECTIVE [None]
  - HAEMATOCHEZIA [None]
